FAERS Safety Report 23338605 (Version 1)
Quarter: 2023Q4

REPORT INFORMATION
  Report Type: Other
  Country: JP (occurrence: None)
  Receive Date: 20231226
  Receipt Date: 20231226
  Transmission Date: 20240110
  Serious: Yes (Other)
  Sender: FDA-Public Use
  Company Number: JP-ROCHE-3478962

PATIENT

DRUGS (2)
  1. ATEZOLIZUMAB [Suspect]
     Active Substance: ATEZOLIZUMAB
     Indication: Hepatocellular carcinoma
     Route: 042
  2. BEVACIZUMAB [Suspect]
     Active Substance: BEVACIZUMAB
     Indication: Hepatocellular carcinoma
     Route: 042

REACTIONS (8)
  - Interstitial lung disease [Unknown]
  - Proteinuria [Unknown]
  - Malaise [Unknown]
  - Haemorrhage intracranial [Unknown]
  - Pyrexia [Unknown]
  - Colitis [Unknown]
  - Meningitis [Unknown]
  - Varices oesophageal [Unknown]
